FAERS Safety Report 5075210-3 (Version None)
Quarter: 2006Q3

REPORT INFORMATION
  Report Type: 
  Country: None (occurrence: None)
  Receive Date: 20060804
  Receipt Date: 20060720
  Transmission Date: 20061208
  Serious: Yes (Hospitalization)
  Sender: FDA-Public Use
  Company Number: US017228

PATIENT
  Age: 3 Year
  Sex: Male
  Weight: 14.55 kg

DRUGS (1)
  1. ACTIQ (SUGAR-FREE) [Suspect]
     Dates: start: 20041204, end: 20041204

REACTIONS (6)
  - ACCIDENTAL DRUG INTAKE BY CHILD [None]
  - LETHARGY [None]
  - NAUSEA [None]
  - SOMNOLENCE [None]
  - STOMACH DISCOMFORT [None]
  - VOMITING [None]
